FAERS Safety Report 7162504-0 (Version None)
Quarter: 2010Q4

REPORT INFORMATION
  Report Type: 
  Country: None (occurrence: None)
  Receive Date: 20101215
  Receipt Date: 20091113
  Transmission Date: 20110411
  Serious: Yes (Hospitalization)
  Sender: FDA-Public Use
  Company Number: AU-PFIZER INC-2009297119

PATIENT
  Age: 49 Year
  Sex: Female

DRUGS (4)
  1. LYRICA [Suspect]
     Indication: NEURALGIA
     Dosage: 150 MG, UNK
     Dates: start: 20091109, end: 20091101
  2. KEPPRA [Concomitant]
     Indication: EPILEPSY
     Dosage: UNK, 2X/DAY
  3. TRAMADOL HYDROCHLORIDE [Concomitant]
     Dosage: UNK
  4. PHENOBARBITAL [Concomitant]
     Dosage: HALF A TABLET, 2X/DAY

REACTIONS (10)
  - APHASIA [None]
  - COORDINATION ABNORMAL [None]
  - DIPLOPIA [None]
  - FALL [None]
  - FEELING ABNORMAL [None]
  - HEMIPARESIS [None]
  - HYPERSENSITIVITY [None]
  - HYPOAESTHESIA [None]
  - PARAESTHESIA [None]
  - TREMOR [None]
